FAERS Safety Report 5754690-1 (Version None)
Quarter: 2008Q2

REPORT INFORMATION
  Report Type: 
  Country: None (occurrence: None)
  Receive Date: 20080527
  Receipt Date: 20080506
  Transmission Date: 20081010
  Serious: Yes (Hospitalization)
  Sender: FDA-Public Use
  Company Number: 2008AL003569

PATIENT
  Age: 83 Year
  Sex: Female
  Weight: 48.0813 kg

DRUGS (3)
  1. DIGOXIN [Suspect]
     Indication: ATRIAL TACHYCARDIA
     Dosage: DAILY PO
     Route: 048
     Dates: start: 20070101, end: 20080401
  2. LIPITOR [Concomitant]
  3. FOSAMAX [Concomitant]

REACTIONS (2)
  - FALL [None]
  - MYOCARDIAL INFARCTION [None]
